FAERS Safety Report 10143935 (Version 1)
Quarter: 2014Q2

REPORT INFORMATION
  Report Type: Spontaneous
  Country: KR (occurrence: KR)
  Receive Date: 20140430
  Receipt Date: 20140430
  Transmission Date: 20141212
  Serious: No
  Sender: FDA-Public Use
  Company Number: KR-JNJFOC-20140414601

PATIENT
  Age: 42 Year
  Sex: Male

DRUGS (5)
  1. DUROGESIC D-TRANS [Suspect]
     Indication: BACK PAIN
     Route: 062
     Dates: start: 201304
  2. DUROGESIC D-TRANS [Suspect]
     Indication: BACK PAIN
     Route: 062
     Dates: start: 201304
  3. DUROGESIC D-TRANS [Suspect]
     Indication: BACK PAIN
     Route: 062
     Dates: start: 201304
  4. TARGIN [Concomitant]
     Indication: BACK PAIN
     Route: 065
     Dates: start: 201304
  5. MAGMIL [Concomitant]
     Indication: CONSTIPATION
     Route: 065
     Dates: start: 201308

REACTIONS (6)
  - Drug ineffective [Unknown]
  - Inappropriate schedule of drug administration [Unknown]
  - Constipation [Not Recovered/Not Resolved]
  - Dizziness [Unknown]
  - Nausea [Unknown]
  - Treatment noncompliance [Unknown]
